FAERS Safety Report 9494346 (Version 1)
Quarter: 2013Q3

REPORT INFORMATION
  Report Type: Spontaneous
  Country: BR (occurrence: BR)
  Receive Date: 20130903
  Receipt Date: 20130903
  Transmission Date: 20140515
  Serious: Yes (Other)
  Sender: FDA-Public Use
  Company Number: BR-JNJFOC-20130814520

PATIENT
  Age: 66 Year
  Sex: Male

DRUGS (5)
  1. SPORANOX [Suspect]
     Indication: CHROMOBLASTOMYCOSIS
     Route: 048
  2. SPORANOX [Suspect]
     Indication: CHROMOBLASTOMYCOSIS
     Route: 048
     Dates: start: 2011
  3. HYDROCHLOROTHIAZIDE [Suspect]
     Indication: PRODUCT USED FOR UNKNOWN INDICATION
     Dosage: EVERY MORNING
     Route: 065
  4. PROPRANOLOL [Suspect]
     Indication: PRODUCT USED FOR UNKNOWN INDICATION
     Dosage: EVERY MORNING
     Route: 065
  5. MICONAZOLE [Concomitant]
     Indication: SKIN IRRITATION
     Route: 061

REACTIONS (2)
  - Suicidal ideation [Unknown]
  - Chromoblastomycosis [Unknown]
